FAERS Safety Report 9116586 (Version 1)
Quarter: 2013Q1

REPORT INFORMATION
  Report Type: Spontaneous
  Country: GB (occurrence: GB)
  Receive Date: 20130225
  Receipt Date: 20130225
  Transmission Date: 20140127
  Serious: Yes (Disabling, Other)
  Sender: FDA-Public Use
  Company Number: PHHY2013GB015709

PATIENT
  Age: 85 Year
  Sex: Female
  Weight: 50.8 kg

DRUGS (16)
  1. ALENDRONIC ACID [Suspect]
  2. INDAPAMIDE [Concomitant]
     Dates: start: 20121018
  3. HYPROMELLOSE [Concomitant]
     Dates: start: 20121018
  4. FUROSEMIDE [Concomitant]
     Dates: start: 20121018
  5. OMEPRAZOLE [Concomitant]
     Dates: start: 20121018
  6. OLANZAPINE [Concomitant]
     Dates: start: 20121018
  7. NAPROXEN [Concomitant]
     Dates: start: 20121018
  8. CETIRIZINE [Concomitant]
     Dates: start: 20121018
  9. BECLOMETASONE [Concomitant]
     Dates: start: 20121018
  10. ATENOLOL [Concomitant]
     Dates: start: 20121018
  11. FOLIC ACID [Concomitant]
     Dates: start: 20121018
  12. CALCIUM CARBONATE [Concomitant]
     Dates: start: 20121018
  13. CO-CODAMOL [Concomitant]
     Dates: start: 20121018
  14. MOVELAT [Concomitant]
     Dates: start: 20121115, end: 20121213
  15. PARACETAMOL [Concomitant]
     Dates: start: 20130102, end: 20130130
  16. MOLAXOLE [Concomitant]
     Dates: start: 20121115, end: 20121213

REACTIONS (1)
  - Decreased appetite [Recovering/Resolving]
